FAERS Safety Report 5189771-7 (Version None)
Quarter: 2006Q4

REPORT INFORMATION
  Report Type: 
  Country: None (occurrence: None)
  Receive Date: 20061215
  Receipt Date: 20061205
  Transmission Date: 20070319
  Serious: Yes (Hospitalization)
  Sender: FDA-Public Use
  Company Number: 233465

PATIENT
  Age: 46 Year
  Sex: Female
  Weight: 85 kg

DRUGS (11)
  1. XOLAIR [Suspect]
     Indication: ASTHMA
     Dosage: 300 MG, Q4W, SUBCUTANEOUS
     Route: 058
     Dates: start: 20061125
  2. SINGULAIR [Concomitant]
  3. BUDESONIDE [Concomitant]
  4. FORMOTEROL          (FORMOTEROL FUMARATE) [Concomitant]
  5. TOPAMAX [Concomitant]
  6. CHLORPROMAZINE [Concomitant]
  7. LIMBITROL                   ( AMITRIPTYLINE HYDROCHLORIDE) [Concomitant]
  8. FLUOXETINE [Concomitant]
  9. TRAMADOL HCL [Concomitant]
  10. AZITHROMYCIN [Concomitant]
  11. CORTICOSTEROIDS                      (CORTICOSTEROID NOS) [Concomitant]

REACTIONS (2)
  - NEUROPATHY PERIPHERAL [None]
  - WHITE BLOOD CELL DISORDER [None]
